FAERS Safety Report 12559877 (Version 1)
Quarter: 2016Q3

REPORT INFORMATION
  Report Type: Spontaneous
  Country: US (occurrence: None)
  Receive Date: 20160714
  Receipt Date: 20160714
  Transmission Date: 20161109
  Serious: Yes (Hospitalization)
  Sender: FDA-Public Use
  Company Number: None

PATIENT
  Age: 26 Year
  Sex: Male
  Weight: 57.7 kg

DRUGS (1)
  1. JADENU [Suspect]
     Active Substance: DEFERASIROX
     Route: 048

REACTIONS (1)
  - Hepatic failure [None]

NARRATIVE: CASE EVENT DATE: 20160502
